FAERS Safety Report 8853771 (Version 2)
Quarter: 2013Q2

REPORT INFORMATION
  Report Type: Spontaneous
  Country: US (occurrence: US)
  Receive Date: 20121023
  Receipt Date: 20130508
  Transmission Date: 20140414
  Serious: No
  Sender: FDA-Public Use
  Company Number: US-009507513-1210USA005685

PATIENT
  Sex: Female
  Weight: 48.98 kg

DRUGS (1)
  1. IMPLANON [Suspect]
     Indication: CONTRACEPTION
     Dosage: UNK
     Dates: start: 20101112

REACTIONS (3)
  - Polymenorrhoea [Unknown]
  - Dysmenorrhoea [Unknown]
  - Menorrhagia [Unknown]
